FAERS Safety Report 25546625 (Version 3)
Quarter: 2025Q3

REPORT INFORMATION
  Report Type: Spontaneous
  Country: US (occurrence: US)
  Receive Date: 20250713
  Receipt Date: 20250724
  Transmission Date: 20251021
  Serious: No
  Sender: JOHNSON AND JOHNSON
  Company Number: US-JNJFOC-20250710426

PATIENT
  Age: 4 Decade
  Sex: Male

DRUGS (2)
  1. TREMFYA [Suspect]
     Active Substance: GUSELKUMAB
     Indication: Connective tissue disorder
     Route: 065
     Dates: start: 20250512
  2. TREMFYA [Suspect]
     Active Substance: GUSELKUMAB
     Indication: Musculoskeletal disorder

REACTIONS (3)
  - Device issue [Unknown]
  - Off label use [Unknown]
  - Product dose omission issue [Unknown]
